FAERS Safety Report 7199222-9 (Version None)
Quarter: 2010Q4

REPORT INFORMATION
  Report Type: 
  Country: None (occurrence: None)
  Receive Date: 20101228
  Receipt Date: 20101214
  Transmission Date: 20110411
  Serious: Yes (Other)
  Sender: FDA-Public Use
  Company Number: ES-ASTELLAS-2010EU006641

PATIENT
  Sex: Male

DRUGS (4)
  1. TACROLIMUS SYSTEMIC [Suspect]
     Indication: INTESTINAL TRANSPLANT
     Dosage: UNK
     Route: 048
  2. METHYLPREDNISOLONE [Suspect]
     Indication: IMMUNOSUPPRESSION
     Dosage: 10 MG/KG, UNKNOWN/D
     Route: 065
  3. METHYLPREDNISOLONE [Suspect]
     Dosage: 0.5 MG/KG, UID/QD
     Route: 065
  4. THYMOGLOBULIN [Suspect]
     Indication: IMMUNOSUPPRESSION
     Dosage: 5 MG/KG, UNKNOWN/D
     Route: 065

REACTIONS (1)
  - ANAEMIA HAEMOLYTIC AUTOIMMUNE [None]
